FAERS Safety Report 10883637 (Version 14)
Quarter: 2021Q3

REPORT INFORMATION
  Report Type: Report from Study
  Country: JP (occurrence: JP)
  Receive Date: 20150303
  Receipt Date: 20210713
  Transmission Date: 20211014
  Serious: Yes (Other)
  Sender: FDA-Public Use
  Company Number: JP-BRISTOL-MYERS SQUIBB COMPANY-BMS-2015-013142

PATIENT
  Age: 39 Year
  Sex: Male
  Weight: 60 kg

DRUGS (6)
  1. NIVOLUMAB [Suspect]
     Active Substance: NIVOLUMAB
     Dosage: 120 MILLIGRAM
     Route: 065
     Dates: start: 20150306, end: 20150306
  2. NIVOLUMAB [Suspect]
     Active Substance: NIVOLUMAB
     Indication: MALIGNANT MELANOMA
     Dosage: 120 MILLIGRAM
     Route: 065
     Dates: start: 20141226, end: 20141226
  3. NIVOLUMAB [Suspect]
     Active Substance: NIVOLUMAB
     Dosage: 2 MILLIGRAM/KILOGRAM, QD
     Route: 041
     Dates: start: 20150116, end: 20150116
  4. NIVOLUMAB [Suspect]
     Active Substance: NIVOLUMAB
     Dosage: UNK
     Route: 041
  5. NIVOLUMAB [Suspect]
     Active Substance: NIVOLUMAB
     Dosage: 2 MILLIGRAM/KILOGRAM, QD
     Route: 041
     Dates: start: 20150306, end: 20150306
  6. NIVOLUMAB [Suspect]
     Active Substance: NIVOLUMAB
     Dosage: 2 MILLIGRAM/KILOGRAM, QD
     Route: 041
     Dates: start: 20150403, end: 20150403

REACTIONS (7)
  - Pyrexia [Recovered/Resolved]
  - Asteatosis [Recovered/Resolved]
  - Pruritus [Recovered/Resolved]
  - Conjunctivitis [Recovered/Resolved]
  - Malignant neoplasm progression [Unknown]
  - Vitiligo [Recovering/Resolving]
  - Off label use [Unknown]

NARRATIVE: CASE EVENT DATE: 20150129
